FAERS Safety Report 5859786-1 (Version None)
Quarter: 2008Q3

REPORT INFORMATION
  Report Type: 
  Country: None (occurrence: None)
  Receive Date: 20080827
  Receipt Date: 20080820
  Transmission Date: 20090109
  Serious: Yes (Hospitalization, Disabling)
  Sender: FDA-Public Use
  Company Number: US-MERCK-0808USA01803

PATIENT
  Age: 66 Year
  Sex: Female

DRUGS (3)
  1. ZOCOR [Suspect]
     Indication: HYPERLIPIDAEMIA
     Route: 048
     Dates: start: 20080501, end: 20080727
  2. DIOVAN [Concomitant]
     Indication: BLOOD PRESSURE
     Route: 065
  3. PLAVIX [Concomitant]
     Route: 065

REACTIONS (4)
  - ABASIA [None]
  - DEHYDRATION [None]
  - DYSGEUSIA [None]
  - LISTLESS [None]
